FAERS Safety Report 11478127 (Version 2)
Quarter: 2017Q4

REPORT INFORMATION
  Report Type: Spontaneous
  Country: US (occurrence: US)
  Receive Date: 20150909
  Receipt Date: 20171018
  Transmission Date: 20180320
  Serious: No
  Sender: FDA-Public Use
  Company Number: US-JAZZ-2015-US-010012

PATIENT
  Sex: Male

DRUGS (5)
  1. XYREM [Suspect]
     Active Substance: SODIUM OXYBATE
     Dosage: 4 G, BID
     Route: 048
     Dates: start: 201404, end: 2014
  2. XYREM [Suspect]
     Active Substance: SODIUM OXYBATE
     Indication: NARCOLEPSY
     Dosage: 1.5 G, BID
     Route: 048
     Dates: start: 201309, end: 201310
  3. XYREM [Suspect]
     Active Substance: SODIUM OXYBATE
     Dosage: 3 G, BID
     Route: 048
     Dates: start: 201506, end: 20150629
  4. XYREM [Suspect]
     Active Substance: SODIUM OXYBATE
     Indication: SOMNOLENCE
     Dosage: DOSE ADJUSTMENTS
     Route: 048
  5. XYREM [Suspect]
     Active Substance: SODIUM OXYBATE
     Dosage: 2.5 G, BID
     Route: 048
     Dates: start: 201506, end: 201506

REACTIONS (10)
  - Appetite disorder [Recovering/Resolving]
  - Anxiety [Recovered/Resolved]
  - Seborrhoea [Recovering/Resolving]
  - Peripheral coldness [Recovering/Resolving]
  - Feeling jittery [Recovering/Resolving]
  - Nervousness [Recovering/Resolving]
  - Hyperhidrosis [Recovering/Resolving]
  - Irritability [Recovering/Resolving]
  - Tremor [Recovering/Resolving]
  - Depression [Recovered/Resolved]

NARRATIVE: CASE EVENT DATE: 2014
